FAERS Safety Report 6698667-0 (Version None)
Quarter: 2010Q2

REPORT INFORMATION
  Report Type: 
  Country: None (occurrence: None)
  Receive Date: 20100427
  Receipt Date: 20100414
  Transmission Date: 20101027
  Serious: Yes (Other)
  Sender: FDA-Public Use
  Company Number: PHHY2010GB15516

PATIENT
  Sex: Female

DRUGS (2)
  1. ZOMETA [Suspect]
     Indication: METASTASES TO BONE
     Dosage: 6WEEKLY-12 WEEKLY
     Route: 042
     Dates: start: 20070601
  2. LETROZOLE [Suspect]
     Indication: METASTASES TO BONE
     Dosage: 2.5 MG, UNK
     Route: 048
     Dates: start: 20070501

REACTIONS (5)
  - BONE DISORDER [None]
  - IMPAIRED HEALING [None]
  - ORAL DISORDER [None]
  - OSTEONECROSIS [None]
  - TOOTH EXTRACTION [None]
